FAERS Safety Report 5484813-3 (Version None)
Quarter: 2007Q4

REPORT INFORMATION
  Report Type: 
  Country: None (occurrence: None)
  Receive Date: 20071012
  Receipt Date: 20071002
  Transmission Date: 20080405
  Serious: Yes (Other)
  Sender: FDA-Public Use
  Company Number: GB-PFIZER INC-2007079518

PATIENT
  Weight: 4.6 kg

DRUGS (5)
  1. SPIRONOLACTONE [Suspect]
     Indication: FALLOT'S TETRALOGY
     Dosage: DAILY DOSE:.4MG/KG-FREQ:DAILY
  2. ACETYLSALICYLIC ACID [Interacting]
     Indication: FALLOT'S TETRALOGY
     Dosage: DAILY DOSE:5MG/KG-FREQ:DAILY
  3. DIAZOXIDE [Interacting]
     Indication: HYPERINSULINISM
  4. DIAZOXIDE [Interacting]
  5. FRUSEMIDE [Interacting]
     Indication: FALLOT'S TETRALOGY
     Dosage: DAILY DOSE:1MG/KG-FREQ:DAILY

REACTIONS (2)
  - DRUG INTERACTION [None]
  - HYPERGLYCAEMIA [None]
